FAERS Safety Report 6654155-9 (Version None)
Quarter: 2010Q1

REPORT INFORMATION
  Report Type: 
  Country: None (occurrence: None)
  Receive Date: 20100326
  Receipt Date: 20100318
  Transmission Date: 20100710
  Serious: Yes (Hospitalization, Other)
  Sender: FDA-Public Use
  Company Number: DE-PFIZER INC-2010030754

PATIENT
  Age: 48 Year
  Sex: Female
  Weight: 80 kg

DRUGS (2)
  1. CELEBREX [Suspect]
     Indication: CONTUSION
     Dosage: 1 DF IN THE MORNING AND 1 DF IN THE EVENING
     Route: 048
     Dates: start: 20100217, end: 20100220
  2. CELEBREX [Suspect]
     Indication: PAIN
     Dosage: 1 DF IN THE MORNING
     Dates: start: 20100221, end: 20100224

REACTIONS (10)
  - ARTERIOSCLEROSIS [None]
  - BLOOD CHOLESTEROL INCREASED [None]
  - BLOOD GLUCOSE INCREASED [None]
  - BLOOD TRIGLYCERIDES INCREASED [None]
  - CHOLELITHIASIS [None]
  - GOITRE [None]
  - HEPATIC ENZYME INCREASED [None]
  - HEPATIC STEATOSIS [None]
  - HYPERTENSIVE CRISIS [None]
  - HYPOKALAEMIA [None]
